FAERS Safety Report 12945930 (Version 1)
Quarter: 2016Q4

REPORT INFORMATION
  Report Type: Spontaneous
  Country: US (occurrence: US)
  Receive Date: 20161116
  Receipt Date: 20161116
  Transmission Date: 20170207
  Serious: Yes (Hospitalization)
  Sender: FDA-Public Use
  Company Number: US-ASTRAZENECA-2016SF18168

PATIENT
  Age: 654 Month
  Sex: Female
  Weight: 90.7 kg

DRUGS (4)
  1. CRESTOR [Suspect]
     Active Substance: ROSUVASTATIN CALCIUM
     Indication: BLOOD CHOLESTEROL ABNORMAL
     Route: 048
     Dates: start: 2012
  2. BLOOD THINNER [Concomitant]
     Active Substance: UNSPECIFIED INGREDIENT
  3. NITROGLYCERINE [Concomitant]
     Active Substance: NITROGLYCERIN
  4. MORE THAN ONE BLOOD PRESSURE MEDICATIONS [Concomitant]

REACTIONS (5)
  - Blood cholesterol increased [Unknown]
  - Amnesia [Unknown]
  - Angina pectoris [Unknown]
  - Myocardial infarction [Unknown]
  - Atrial fibrillation [Unknown]

NARRATIVE: CASE EVENT DATE: 201208
